FAERS Safety Report 11672401 (Version 1)
Quarter: 2015Q4

REPORT INFORMATION
  Report Type: Spontaneous
  Country: US (occurrence: None)
  Receive Date: 20151027
  Receipt Date: 20151027
  Transmission Date: 20160304
  Serious: Yes (Other)
  Sender: FDA-Public Use
  Company Number: None

PATIENT
  Age: 34 Year
  Sex: Female
  Weight: 94.8 kg

DRUGS (7)
  1. GLUCOSE MONITOR [Concomitant]
  2. LEVAQUIN [Suspect]
     Active Substance: LEVOFLOXACIN
     Indication: POSTOPERATIVE CARE
     Dosage: INTO A VEIN
     Dates: start: 20151009, end: 20151010
  3. LEVAQUIN [Suspect]
     Active Substance: LEVOFLOXACIN
     Indication: ANTIBIOTIC PROPHYLAXIS
     Dosage: INTO A VEIN
     Dates: start: 20151009, end: 20151010
  4. ADDERALL [Concomitant]
     Active Substance: AMPHETAMINE ASPARTATE\AMPHETAMINE SULFATE\DEXTROAMPHETAMINE SACCHARATE\DEXTROAMPHETAMINE SULFATE
  5. CPAP [Concomitant]
     Active Substance: DEVICE
  6. CETALOPRAM [Concomitant]
  7. ZYRTEC OTC [Concomitant]

REACTIONS (4)
  - Gait disturbance [None]
  - Tendon pain [None]
  - Arthralgia [None]
  - Weight decreased [None]

NARRATIVE: CASE EVENT DATE: 20151009
